FAERS Safety Report 5523396-6 (Version None)
Quarter: 2007Q4

REPORT INFORMATION
  Report Type: 
  Country: None (occurrence: None)
  Receive Date: 20071121
  Receipt Date: 20071116
  Transmission Date: 20080405
  Serious: Yes (Hospitalization)
  Sender: FDA-Public Use
  Company Number: US-TYCO HEALTHCARE/MALLINCKRODT-T200701408

PATIENT

DRUGS (1)
  1. BONTRIL [Suspect]
     Indication: WEIGHT CONTROL
     Dosage: 35 MG, TID
     Route: 048
     Dates: start: 20050201

REACTIONS (1)
  - RHABDOMYOLYSIS [None]
